FAERS Safety Report 6566526-X (Version None)
Quarter: 2010Q1

REPORT INFORMATION
  Report Type: 
  Country: None (occurrence: None)
  Receive Date: 20100202
  Receipt Date: 20100121
  Transmission Date: 20100710
  Serious: No
  Sender: FDA-Public Use
  Company Number: US-B.I. PHARMACEUTICALS,INC./RIDGEFIELD-2010-BP-00790BP

PATIENT
  Age: 73 Year
  Sex: Male

DRUGS (7)
  1. MIRAPEX [Suspect]
     Indication: RESTLESS LEGS SYNDROME
     Route: 048
     Dates: start: 20070101
  2. PLETAL [Concomitant]
     Indication: PERIPHERAL VASCULAR DISORDER
  3. ANTIVERT [Concomitant]
     Indication: DIZZINESS
     Dosage: 25 MG
  4. VYTORIN [Concomitant]
     Indication: HYPERTENSION
  5. VYTORIN [Concomitant]
     Indication: BLOOD CHOLESTEROL INCREASED
  6. COUMADIN [Concomitant]
     Indication: PROPHYLAXIS
     Dosage: 5 MG
  7. INHALER [Concomitant]
     Indication: CHRONIC OBSTRUCTIVE PULMONARY DISEASE

REACTIONS (3)
  - INCORRECT DOSE ADMINISTERED [None]
  - SUDDEN ONSET OF SLEEP [None]
  - TREMOR [None]
